FAERS Safety Report 9292042 (Version 2)
Quarter: 2013Q3

REPORT INFORMATION
  Report Type: Spontaneous
  Country: US (occurrence: US)
  Receive Date: 20130516
  Receipt Date: 20130928
  Transmission Date: 20140515
  Serious: No
  Sender: FDA-Public Use
  Company Number: US-009507513-1305USA003272

PATIENT
  Age: 27 Year
  Sex: Female
  Weight: 135.15 kg

DRUGS (1)
  1. IMPLANON [Suspect]
     Indication: CONTRACEPTION
     Dosage: EVERY 3 YEARS, 1 ROD
     Route: 059
     Dates: start: 20130425

REACTIONS (8)
  - Implant site pain [Unknown]
  - Hypoaesthesia [Unknown]
  - Pruritus [Unknown]
  - Medical device complication [Unknown]
  - Mass [Unknown]
  - Burning sensation [Unknown]
  - Paraesthesia [Unknown]
  - Device deployment issue [Unknown]
